FAERS Safety Report 7966981-4 (Version None)
Quarter: 2011Q4

REPORT INFORMATION
  Report Type: 
  Country: None (occurrence: None)
  Receive Date: 20111209
  Receipt Date: 20111201
  Transmission Date: 20120403
  Serious: Yes (Hospitalization)
  Sender: FDA-Public Use
  Company Number: US-CELGENEUS-163-AB007-11120422

PATIENT
  Sex: Male

DRUGS (9)
  1. GEMCITABINE [Suspect]
     Dosage: 1000 MILLIGRAM/SQ. METER
     Route: 041
     Dates: start: 20111011
  2. SODIUM CHLORIDE [Concomitant]
     Indication: DEHYDRATION
     Dosage: 2 LITERS
     Route: 065
     Dates: start: 20110101
  3. ABRAXANE [Suspect]
     Dosage: 125 MILLIGRAM/SQ. METER
     Route: 041
     Dates: start: 20111011
  4. PEDIALYTE [Concomitant]
     Route: 065
     Dates: start: 20110101
  5. CODEINE-CONTAINING COUGH SYRUP [Concomitant]
     Route: 065
  6. ZOFRAN [Concomitant]
     Indication: NAUSEA
     Route: 065
  7. ABRAXANE [Suspect]
     Dosage: 125 MILLIGRAM/SQ. METER
     Route: 041
     Dates: start: 20111121
  8. ZOFRAN [Concomitant]
     Indication: VOMITING
  9. GEMCITABINE [Suspect]
     Dosage: 1000 MILLIGRAM/SQ. METER
     Route: 041
     Dates: start: 20111121

REACTIONS (3)
  - FATIGUE [None]
  - ASTHENIA [None]
  - HYPONATRAEMIA [None]
